FAERS Safety Report 9689104 (Version 1)
Quarter: 2013Q4

REPORT INFORMATION
  Report Type: Spontaneous
  Country: MX (occurrence: MX)
  Receive Date: 20131114
  Receipt Date: 20131114
  Transmission Date: 20140711
  Serious: Yes (Other)
  Sender: FDA-Public Use
  Company Number: PHHY2013MX130009

PATIENT
  Age: 59 Year
  Sex: Female

DRUGS (5)
  1. CO-DIOVAN [Suspect]
     Indication: HYPERTENSION
     Dosage: 1 DF (80/12.5MG), DAILY
     Route: 048
     Dates: end: 201309
  2. CO-DIOVAN [Suspect]
     Dosage: 2 DF (80/12.5MG), DAILY
     Route: 048
     Dates: start: 201309
  3. JALRA M [Concomitant]
     Indication: DIABETES MELLITUS
     Dosage: 1 UKN, DAILY
     Dates: start: 2010
  4. ASPIRIN PROTECT [Concomitant]
     Indication: ANGIOPATHY
     Dosage: 1 UKN, DAILY
     Dates: start: 2011
  5. INSULIN [Concomitant]
     Indication: DIABETES MELLITUS
     Dosage: UNK UKN, DAILY

REACTIONS (3)
  - Diabetes mellitus [Not Recovered/Not Resolved]
  - Angiopathy [Unknown]
  - Blood pressure abnormal [Not Recovered/Not Resolved]
